FAERS Safety Report 6315106-X (Version None)
Quarter: 2009Q3

REPORT INFORMATION
  Report Type: 
  Country: None (occurrence: None)
  Receive Date: 20090819
  Receipt Date: 20090814
  Transmission Date: 20100115
  Serious: Yes (Hospitalization)
  Sender: FDA-Public Use
  Company Number: DE-AMGEN-UK360292

PATIENT
  Age: 46 Year
  Sex: Female

DRUGS (2)
  1. NPLATE [Suspect]
     Indication: IDIOPATHIC THROMBOCYTOPENIC PURPURA
  2. HEPARIN [Concomitant]

REACTIONS (2)
  - PULMONARY EMBOLISM [None]
  - THROMBOSIS [None]
